FAERS Safety Report 8447769-7 (Version None)
Quarter: 2012Q2

REPORT INFORMATION
  Report Type: 
  Country: None (occurrence: None)
  Receive Date: 20120612
  Receipt Date: 20120601
  Transmission Date: 20120825
  Serious: Yes (Hospitalization, Other)
  Sender: FDA-Public Use
  Company Number: GGEL20120500613

PATIENT
  Age: 53 Year
  Sex: Male

DRUGS (3)
  1. FUROSEMIDE [Concomitant]
  2. HYDRALAZINE HCL [Suspect]
     Indication: PORTAL HYPERTENSION
     Dosage: 75 MILLIGRAM, THRICE A DAY
  3. HYDRALAZINE HCL [Suspect]
     Indication: ASCITES
     Dosage: 75 MILLIGRAM, THRICE A DAY

REACTIONS (5)
  - ACUTE FEBRILE NEUTROPHILIC DERMATOSIS [None]
  - HAEMATURIA [None]
  - PLEURAL EFFUSION [None]
  - PERICARDIAL EFFUSION [None]
  - LUPUS-LIKE SYNDROME [None]
